FAERS Safety Report 5834533-8 (Version None)
Quarter: 2008Q3

REPORT INFORMATION
  Report Type: 
  Country: None (occurrence: None)
  Receive Date: 20080801
  Receipt Date: 20080716
  Transmission Date: 20090109
  Serious: Yes (Hospitalization, Disabling)
  Sender: FDA-Public Use
  Company Number: 2008AL008347

PATIENT
  Age: 95 Year
  Sex: Female
  Weight: 54.4316 kg

DRUGS (6)
  1. DIGOXIN [Suspect]
     Indication: ATRIAL FIBRILLATION
     Dosage: 0.2MG DAILY PO
     Route: 048
     Dates: start: 20071031, end: 20071107
  2. LEVOTHYROXINE SODIUM [Concomitant]
  3. WARFARIN SODIUM [Concomitant]
  4. LASIX [Concomitant]
  5. LISINOPRIL [Concomitant]
  6. POTASSIUM CHLORIDE [Concomitant]

REACTIONS (7)
  - CARDIOACTIVE DRUG LEVEL INCREASED [None]
  - COUGH [None]
  - HEART RATE DECREASED [None]
  - HYPERTENSION [None]
  - MYOCARDIAL INFARCTION [None]
  - NAUSEA [None]
  - VOMITING [None]
